FAERS Safety Report 4583718-X (Version None)
Quarter: 2005Q1

REPORT INFORMATION
  Report Type: 
  Country: None (occurrence: None)
  Receive Date: 20050125
  Receipt Date: 20041007
  Transmission Date: 20050727
  Serious: No
  Sender: FDA-Public Use
  Company Number: USA041080524

PATIENT
  Age: 74 Year
  Sex: Female
  Weight: 59 kg

DRUGS (5)
  1. FORTEO [Suspect]
     Dosage: 20 UG/1 DAY
     Dates: start: 20041005
  2. OSCAL (CALCIUM CARBONATE) [Concomitant]
  3. ASPIRIN [Concomitant]
  4. LOVASTATIN [Concomitant]
  5. TRIAMETERENE [Concomitant]

REACTIONS (1)
  - FATIGUE [None]
